FAERS Safety Report 9168956 (Version 1)
Quarter: 2013Q1

REPORT INFORMATION
  Report Type: Spontaneous
  Country: IT (occurrence: IT)
  Receive Date: 20130318
  Receipt Date: 20130318
  Transmission Date: 20140127
  Serious: Yes (Other)
  Sender: FDA-Public Use
  Company Number: IT-TEVA-392055ISR

PATIENT
  Age: 46 Year
  Sex: Female

DRUGS (12)
  1. QUETIAPINA [Suspect]
     Indication: MANIA
     Dates: start: 20130201, end: 20130226
  2. ANSIOLIN [Concomitant]
     Dosage: 0,5%, SOLUTION FOR ORAL DROPS
     Route: 048
  3. TRANQUIRIT [Concomitant]
     Dosage: 0,5%, SOLUTION FOR ORAL DROPS
     Route: 048
  4. KEPPRA [Concomitant]
     Dosage: 1000 MILLIGRAM DAILY;
     Route: 048
  5. TEGRETOL [Concomitant]
     Dosage: 800 MILLIGRAM DAILY;
     Route: 048
  6. FELISON [Concomitant]
     Dosage: 30 MILLIGRAM DAILY;
     Route: 048
  7. SYNFLEX [Concomitant]
     Route: 048
  8. TOTALIP [Concomitant]
     Route: 048
  9. ENAPREN [Concomitant]
     Route: 048
  10. DIUREMID [Concomitant]
     Route: 048
  11. LANSOPRAZOLO DOC GENERICI [Concomitant]
     Route: 048
  12. LYRICA [Concomitant]
     Dosage: 75 MILLIGRAM DAILY;
     Route: 048

REACTIONS (3)
  - Epilepsy [Unknown]
  - Drug ineffective [Unknown]
  - Mania [Unknown]
